FAERS Safety Report 4982788-4 (Version None)
Quarter: 2006Q2

REPORT INFORMATION
  Report Type: 
  Country: None (occurrence: None)
  Receive Date: 20060425
  Receipt Date: 20060103
  Transmission Date: 20061013
  Serious: Yes (Hospitalization)
  Sender: FDA-Public Use
  Company Number: US-MERCK-0601USA00274

PATIENT
  Age: 69 Year
  Sex: Male
  Weight: 82 kg

DRUGS (1)
  1. VIOXX [Suspect]
     Indication: ARTHRITIS
     Route: 048
     Dates: start: 20031203, end: 20041024

REACTIONS (16)
  - ACCIDENTAL OVERDOSE [None]
  - AORTIC VALVE INCOMPETENCE [None]
  - CEREBROVASCULAR ACCIDENT [None]
  - CHEST PAIN [None]
  - CONTUSION [None]
  - DIASTOLIC DYSFUNCTION [None]
  - DYSPNOEA [None]
  - ERECTILE DYSFUNCTION [None]
  - HAEMATURIA [None]
  - MITRAL VALVE INCOMPETENCE [None]
  - NOCTURIA [None]
  - OEDEMA PERIPHERAL [None]
  - POLYURIA [None]
  - SINUS BRADYCARDIA [None]
  - TONGUE HAEMATOMA [None]
  - VENTRICULAR HYPERTROPHY [None]
